FAERS Safety Report 14700099 (Version 1)
Quarter: 2018Q1

REPORT INFORMATION
  Report Type: Spontaneous
  Country: CA (occurrence: CA)
  Receive Date: 20180330
  Receipt Date: 20180330
  Transmission Date: 20180509
  Serious: Yes (Other)
  Sender: FDA-Public Use
  Company Number: CA-GLAXOSMITHKLINE-CA2018GSK050617

PATIENT
  Sex: Male

DRUGS (7)
  1. CICLESONIDE [Suspect]
     Active Substance: CICLESONIDE
     Indication: PRODUCT USED FOR UNKNOWN INDICATION
     Dosage: 2 DF
     Route: 055
  2. PREDNISONE. [Suspect]
     Active Substance: PREDNISONE
     Indication: PRODUCT USED FOR UNKNOWN INDICATION
     Dosage: 5 MG, UNK
     Route: 065
  3. DILTIAZEM HYDROCHLORIDE. [Concomitant]
     Active Substance: DILTIAZEM HYDROCHLORIDE
     Indication: PRODUCT USED FOR UNKNOWN INDICATION
     Dosage: UNK
     Route: 065
  4. NUCALA [Suspect]
     Active Substance: MEPOLIZUMAB
     Indication: ASTHMA
     Dosage: 100 MG
     Route: 065
  5. FLUTICASONE PROPIONATE+SALMETEROL XINAFOATE [Suspect]
     Active Substance: FLUTICASONE PROPIONATE\SALMETEROL XINAFOATE
     Indication: PRODUCT USED FOR UNKNOWN INDICATION
     Dosage: 1 DF, UNK
     Route: 065
  6. DIGOXIN. [Concomitant]
     Active Substance: DIGOXIN
     Indication: HEART RATE IRREGULAR
     Dosage: UNK
     Route: 065
  7. PRADAXA [Concomitant]
     Active Substance: DABIGATRAN ETEXILATE MESYLATE
     Indication: PRODUCT USED FOR UNKNOWN INDICATION
     Dosage: UNK
     Route: 065

REACTIONS (14)
  - Cough [Not Recovered/Not Resolved]
  - Heart rate irregular [Recovering/Resolving]
  - Impaired healing [Not Recovered/Not Resolved]
  - Limb injury [Recovered/Resolved]
  - Skin haemorrhage [Not Recovered/Not Resolved]
  - Disturbance in attention [Unknown]
  - Limb injury [Not Recovered/Not Resolved]
  - Disorientation [Recovered/Resolved]
  - Nervousness [Recovering/Resolving]
  - Skin injury [Recovering/Resolving]
  - Body temperature decreased [Not Recovered/Not Resolved]
  - Wound necrosis [Recovering/Resolving]
  - Mental disorder [Recovering/Resolving]
  - Pyrexia [Unknown]
